FAERS Safety Report 13655338 (Version 1)
Quarter: 2017Q2

REPORT INFORMATION
  Report Type: Report from Study
  Country: US (occurrence: US)
  Receive Date: 20170615
  Receipt Date: 20170615
  Transmission Date: 20170830
  Serious: Yes (Death, Hospitalization)
  Sender: FDA-Public Use
  Company Number: US-TORRENT-00002956

PATIENT
  Age: 45 Year
  Sex: Male

DRUGS (11)
  1. TEMAZEPAM. [Suspect]
     Active Substance: TEMAZEPAM
  2. LURASIDONE HYDROCHLORIDE [Suspect]
     Active Substance: LURASIDONE HYDROCHLORIDE
  3. OLANZAPINE. [Suspect]
     Active Substance: OLANZAPINE
  4. ZOLPIDEM TARTRATE. [Suspect]
     Active Substance: ZOLPIDEM TARTRATE
  5. LORAZEPAM. [Suspect]
     Active Substance: LORAZEPAM
  6. RISPERIDONE. [Suspect]
     Active Substance: RISPERIDONE
  7. BENZATROPINE MESILATE [Suspect]
     Active Substance: BENZTROPINE
  8. LITHIUM CARBONATE. [Suspect]
     Active Substance: LITHIUM CARBONATE
  9. PAROXETINE HYDROCHLORIDE. [Suspect]
     Active Substance: PAROXETINE HYDROCHLORIDE
  10. QUETIAPINE. [Suspect]
     Active Substance: QUETIAPINE
  11. BUPROPION. [Suspect]
     Active Substance: BUPROPION

REACTIONS (2)
  - Toxicity to various agents [Fatal]
  - Completed suicide [Fatal]
